FAERS Safety Report 9476724 (Version 1)
Quarter: 2013Q3

REPORT INFORMATION
  Report Type: Spontaneous
  Country: US (occurrence: US)
  Receive Date: 20130826
  Receipt Date: 20130826
  Transmission Date: 20140515
  Serious: No
  Sender: FDA-Public Use
  Company Number: US-BRISTOL-MYERS SQUIBB COMPANY-17132218

PATIENT
  Sex: 0

DRUGS (1)
  1. KENALOG-40 INJ [Suspect]
     Route: 008

REACTIONS (1)
  - Incorrect route of drug administration [Unknown]
